FAERS Safety Report 13022569 (Version 2)
Quarter: 2017Q4

REPORT INFORMATION
  Report Type: Spontaneous
  Country: JP (occurrence: JP)
  Receive Date: 20161213
  Receipt Date: 20171020
  Transmission Date: 20180320
  Serious: Yes (Hospitalization, Other)
  Sender: FDA-Public Use
  Company Number: JP-MYLANLABS-2016M1054242

PATIENT
  Age: 84 Year
  Sex: Female

DRUGS (1)
  1. MEMANTINE MYLAN [Suspect]
     Active Substance: MEMANTINE
     Indication: PRODUCT USED FOR UNKNOWN INDICATION
     Dosage: 5 UNK, UNK
     Route: 065

REACTIONS (9)
  - Speech disorder [Unknown]
  - Cognitive disorder [Unknown]
  - White blood cell count increased [Unknown]
  - Loss of consciousness [Not Recovered/Not Resolved]
  - Cerebral atrophy [Unknown]
  - Myoclonus [Unknown]
  - Lung infiltration [Unknown]
  - C-reactive protein increased [Unknown]
  - Pneumonia [Unknown]
